FAERS Safety Report 9240975 (Version 1)
Quarter: 2013Q2

REPORT INFORMATION
  Report Type: Report from Study
  Country: CA (occurrence: CA)
  Receive Date: 20130418
  Receipt Date: 20130418
  Transmission Date: 20140414
  Serious: Yes (Other)
  Sender: FDA-Public Use
  Company Number: CA-ROCHE-1215231

PATIENT
  Sex: Female
  Weight: 50.8 kg

DRUGS (16)
  1. RITUXAN [Suspect]
     Indication: RHEUMATOID ARTHRITIS
     Route: 042
     Dates: start: 20120912, end: 20120924
  2. DIPHENHYDRAMINE HCL [Concomitant]
     Indication: PREMEDICATION
     Route: 048
     Dates: start: 20120912, end: 20120924
  3. ACETAMINOPHEN [Concomitant]
     Indication: PREMEDICATION
     Route: 048
     Dates: start: 20120912, end: 20120924
  4. METHYLPREDNISOLONE [Concomitant]
     Indication: PREMEDICATION
     Route: 042
     Dates: start: 20120912, end: 20120924
  5. FENTANYL [Concomitant]
  6. DILAUDID [Concomitant]
  7. PANTOLOC [Concomitant]
  8. FOLIC ACID [Concomitant]
  9. CARBOCAL [Concomitant]
  10. VITAMIN B12 [Concomitant]
  11. TEMAZEPAM [Concomitant]
  12. ACTONEL [Concomitant]
  13. COZAAR [Concomitant]
  14. TYLENOL ARTHRITIS [Concomitant]
  15. ACETYLSALICYLIC ACID [Concomitant]
  16. SYNTHROID [Concomitant]

REACTIONS (3)
  - Joint swelling [Not Recovered/Not Resolved]
  - Red blood cell sedimentation rate increased [Not Recovered/Not Resolved]
  - C-reactive protein increased [Not Recovered/Not Resolved]
